FAERS Safety Report 14954040 (Version 2)
Quarter: 2018Q3

REPORT INFORMATION
  Report Type: Report from Study
  Country: US (occurrence: US)
  Receive Date: 20180530
  Receipt Date: 20180720
  Transmission Date: 20181010
  Serious: Yes (Other)
  Sender: FDA-Public Use
  Company Number: US-ASTRAZENECA-2018SE42761

PATIENT
  Age: 23617 Day
  Sex: Female
  Weight: 61.4 kg

DRUGS (5)
  1. LYNPARZA [Suspect]
     Active Substance: OLAPARIB
     Indication: METASTASES TO PERITONEUM
     Route: 048
     Dates: start: 20171126, end: 20180108
  2. LYNPARZA [Suspect]
     Active Substance: OLAPARIB
     Indication: METASTASES TO PERITONEUM
     Route: 048
  3. LISINOPRIL. [Concomitant]
     Active Substance: LISINOPRIL
     Indication: HYPERTENSION
     Dosage: 5MG
  4. LYNPARZA [Suspect]
     Active Substance: OLAPARIB
     Indication: METASTASES TO PERITONEUM
     Route: 048
     Dates: start: 20180327
  5. LYNPARZA [Suspect]
     Active Substance: OLAPARIB
     Indication: METASTASES TO PERITONEUM
     Route: 048
     Dates: start: 20180116, end: 20180327

REACTIONS (5)
  - Product use in unapproved indication [Unknown]
  - Thrombocytopenia [Not Recovered/Not Resolved]
  - Off label use [Unknown]
  - Haematotoxicity [Not Recovered/Not Resolved]
  - Anaemia [Not Recovered/Not Resolved]

NARRATIVE: CASE EVENT DATE: 20180108
